FAERS Safety Report 24385080 (Version 1)
Quarter: 2024Q4

REPORT INFORMATION
  Report Type: Report from Study
  Country: FI (occurrence: FI)
  Receive Date: 20241001
  Receipt Date: 20241001
  Transmission Date: 20250115
  Serious: Yes (Other)
  Sender: UCB
  Company Number: FI-UCBSA-2024050090

PATIENT
  Age: 18 Year

DRUGS (10)
  1. BRIVARACETAM [Suspect]
     Active Substance: BRIVARACETAM
     Indication: Partial seizures
     Dosage: UNK
  2. BRIVARACETAM [Suspect]
     Active Substance: BRIVARACETAM
     Indication: Tonic convulsion
  3. TOPIRAMATE [Concomitant]
     Active Substance: TOPIRAMATE
     Indication: Partial seizures
     Dosage: 200 MILLIGRAM PER DAY
  4. TOPIRAMATE [Concomitant]
     Active Substance: TOPIRAMATE
     Indication: Tonic convulsion
  5. LAMOTRIGINE [Concomitant]
     Active Substance: LAMOTRIGINE
     Indication: Partial seizures
     Dosage: 200 MILLIGRAM PER DAY
  6. LAMOTRIGINE [Concomitant]
     Active Substance: LAMOTRIGINE
     Indication: Tonic convulsion
  7. VALPROATE [Concomitant]
     Active Substance: VALPROIC ACID
     Indication: Partial seizures
     Dosage: 1200 MILLIGRAM PER DAY
  8. VALPROATE [Concomitant]
     Active Substance: VALPROIC ACID
     Indication: Tonic convulsion
  9. CLOBAZAM [Concomitant]
     Active Substance: CLOBAZAM
     Indication: Partial seizures
     Dosage: 25 MILLIGRAM PER DAY
  10. CLOBAZAM [Concomitant]
     Active Substance: CLOBAZAM
     Indication: Tonic convulsion

REACTIONS (2)
  - Seizure [Unknown]
  - Drug ineffective [Unknown]
